FAERS Safety Report 18141612 (Version 1)
Quarter: 2020Q3

REPORT INFORMATION
  Report Type: Report from Study
  Country: None (occurrence: US)
  Receive Date: 20200812
  Receipt Date: 20200812
  Transmission Date: 20201103
  Serious: Yes (Death, Life-Threatening, Other)
  Sender: FDA-Public Use
  Company Number: US-ABBVIE-20K-163-3522474-00

PATIENT

DRUGS (2)
  1. OBINUTUZUMAB. [Suspect]
     Active Substance: OBINUTUZUMAB
     Indication: CHRONIC LYMPHOCYTIC LEUKAEMIA
     Route: 065
  2. IBRUTINIB [Suspect]
     Active Substance: IBRUTINIB
     Indication: CHRONIC LYMPHOCYTIC LEUKAEMIA
     Route: 048

REACTIONS (20)
  - Myelodysplastic syndrome [Fatal]
  - Central nervous system haemorrhage [Unknown]
  - Arthralgia [Unknown]
  - Contusion [Unknown]
  - Sudden cardiac death [Fatal]
  - Acute coronary syndrome [Unknown]
  - Pneumonia [Unknown]
  - Transaminases increased [Unknown]
  - Pneumonia fungal [Unknown]
  - Febrile neutropenia [Unknown]
  - Anaemia [Unknown]
  - Upper respiratory tract infection [Unknown]
  - Nausea [Unknown]
  - Thrombocytopenia [Unknown]
  - Tumour lysis syndrome [Unknown]
  - Diarrhoea [Unknown]
  - Atrial fibrillation [Unknown]
  - Neutropenia [Unknown]
  - Gastrointestinal haemorrhage [Unknown]
  - Hypertension [Unknown]
